FAERS Safety Report 19766871 (Version 2)
Quarter: 2021Q3

REPORT INFORMATION
  Report Type: Spontaneous
  Country: FR (occurrence: FR)
  Receive Date: 20210830
  Receipt Date: 20210901
  Transmission Date: 20211014
  Serious: Yes (Life-Threatening, Hospitalization, Other)
  Sender: FDA-Public Use
  Company Number: FR-PFIZER INC-202101094730

PATIENT
  Age: 71 Year
  Sex: Male

DRUGS (3)
  1. MIDOSTAURIN [Suspect]
     Active Substance: MIDOSTAURIN
     Dosage: 100 MG
     Dates: start: 20210701, end: 20210714
  2. DAUNORUBICIN [Suspect]
     Active Substance: DAUNORUBICIN
     Dosage: 100 MG
     Dates: start: 20210624, end: 20210626
  3. CYTARABINE. [Suspect]
     Active Substance: CYTARABINE
     Dosage: 330 MG
     Dates: start: 20210624, end: 20210630

REACTIONS (5)
  - Melaena [Not Recovered/Not Resolved]
  - Gastrointestinal haemorrhage [Not Recovered/Not Resolved]
  - Loss of consciousness [Unknown]
  - Neoplasm progression [Unknown]
  - Thrombocytopenia [Unknown]

NARRATIVE: CASE EVENT DATE: 20210730
